FAERS Safety Report 8010179-0 (Version None)
Quarter: 2011Q4

REPORT INFORMATION
  Report Type: 
  Country: None (occurrence: None)
  Receive Date: 20111228
  Receipt Date: 20111213
  Transmission Date: 20120403
  Serious: Yes (Other)
  Sender: FDA-Public Use
  Company Number: RU-MYLANLABS-2011S1025993

PATIENT
  Age: 4 Decade

DRUGS (6)
  1. DEXAMETHASONE [Concomitant]
     Indication: ACUTE LYMPHOCYTIC LEUKAEMIA
     Dosage: 20 MG/M2 (4TH CONSOLIDATION COURSE)
     Route: 065
     Dates: start: 20100801
  2. PIPERACILLIN AND TAZOBACTAM [Suspect]
     Indication: MOUTH ULCERATION
     Route: 065
  3. ASPARAGINASE [Concomitant]
     Indication: ACUTE LYMPHOCYTIC LEUKAEMIA
     Dosage: 10 000 U/M2 (4TH CONSOLIDATION COURSE)
     Route: 065
     Dates: start: 20100801
  4. LEUCOVORIN CALCIUM [Concomitant]
     Indication: ACUTE LYMPHOCYTIC LEUKAEMIA
     Dosage: CALIBRATED TO 350MG EVERY 4H AFTER ADR ONSET (BASED ON METHOTREXATE SERUM CONCENTRATION)
  5. METHOTREXATE [Suspect]
     Indication: ACUTE LYMPHOCYTIC LEUKAEMIA
     Dosage: 1500 MG/M2 INFUSION OVER 24-H PERIOD (4TH CONSOLIDATION COURSE)
     Dates: start: 20100801
  6. PIPERACILLIN AND TAZOBACTAM [Suspect]
     Indication: NECROTISING COLITIS
     Route: 065

REACTIONS (7)
  - CHEMOTHERAPEUTIC DRUG LEVEL ABOVE THERAPEUTIC [None]
  - ANAEMIA [None]
  - RENAL FAILURE ACUTE [None]
  - MOUTH ULCERATION [None]
  - THROMBOCYTOPENIA [None]
  - AGRANULOCYTOSIS [None]
  - NECROTISING COLITIS [None]
